FAERS Safety Report 7779123-5 (Version None)
Quarter: 2011Q3

REPORT INFORMATION
  Report Type: 
  Country: None (occurrence: None)
  Receive Date: 20110926
  Receipt Date: 20110909
  Transmission Date: 20111222
  Serious: Yes (Life-Threatening, Hospitalization, Other)
  Sender: FDA-Public Use
  Company Number: GXKR2008DK12704

PATIENT
  Sex: Female
  Weight: 65.5 kg

DRUGS (10)
  1. ACYCLOVIR [Suspect]
  2. ETOPOSIDE [Suspect]
  3. NOXAFIL [Interacting]
     Indication: HEPATOSPLENIC CANDIDIASIS
     Dosage: 40 MG/ML
     Route: 048
     Dates: start: 20071020, end: 20080125
  4. ONDANSETRON [Interacting]
     Route: 065
  5. ALLOPURINOL [Suspect]
  6. CYTARABINE [Suspect]
     Route: 065
  7. VOGALENE [Suspect]
  8. DEXAMETHASONE [Suspect]
  9. POTASSIUM CHLORIDE [Suspect]
     Route: 048
  10. PANTOPRAZOLE SODIUM [Suspect]

REACTIONS (8)
  - BRADYARRHYTHMIA [None]
  - BRADYCARDIA [None]
  - NODAL ARRHYTHMIA [None]
  - ATRIOVENTRICULAR BLOCK SECOND DEGREE [None]
  - DRUG INTERACTION [None]
  - SINOATRIAL BLOCK [None]
  - SINUS TACHYCARDIA [None]
  - SINUS BRADYCARDIA [None]
